FAERS Safety Report 5040021-1 (Version None)
Quarter: 2006Q2

REPORT INFORMATION
  Report Type: 
  Country: None (occurrence: None)
  Receive Date: 20060630
  Receipt Date: 20060621
  Transmission Date: 20061013
  Serious: Yes (Hospitalization)
  Sender: FDA-Public Use
  Company Number: GB-JNJFOC-20060605136

PATIENT
  Age: 14 Year
  Sex: Male

DRUGS (1)
  1. CONCERTA [Suspect]
     Indication: DRUG USE FOR UNKNOWN INDICATION
     Dosage: EXPERIMENTAL OVERDOSE PRESCRIBED BY DOCTOR
     Route: 048

REACTIONS (2)
  - PRESCRIBED OVERDOSE [None]
  - PSYCHOTIC DISORDER [None]
